FAERS Safety Report 6661186-1 (Version None)
Quarter: 2010Q1

REPORT INFORMATION
  Report Type: 
  Country: None (occurrence: None)
  Receive Date: 20100331
  Receipt Date: 20100326
  Transmission Date: 20100710
  Serious: Yes (Death)
  Sender: FDA-Public Use
  Company Number: B0636239A

PATIENT
  Sex: Male
  Weight: 73.5 kg

DRUGS (6)
  1. KIVEXA [Suspect]
     Indication: DRUG USE FOR UNKNOWN INDICATION
     Dosage: 1TAB PER DAY
     Route: 065
     Dates: start: 20000101
  2. ATAZANAVIR [Concomitant]
     Route: 048
     Dates: start: 20071001
  3. RITONAVIR [Concomitant]
     Route: 048
     Dates: start: 20071001
  4. PRAVASTATIN [Concomitant]
     Route: 048
     Dates: start: 20060101
  5. PERINDOPRIL [Concomitant]
     Route: 048
     Dates: start: 20060101
  6. ASPIRIN [Concomitant]
     Route: 048
     Dates: start: 20100128

REACTIONS (4)
  - CHEST PAIN [None]
  - CORONARY ARTERY DISEASE [None]
  - MYOCARDIAL INFARCTION [None]
  - VASCULAR OCCLUSION [None]
